FAERS Safety Report 16814118 (Version 1)
Quarter: 2019Q3

REPORT INFORMATION
  Report Type: Spontaneous
  Country: US (occurrence: US)
  Receive Date: 20190917
  Receipt Date: 20190917
  Transmission Date: 20191005
  Serious: No
  Sender: FDA-Public Use
  Company Number: US-ALLERGAN-1902162US

PATIENT
  Age: 82 Year
  Sex: Male

DRUGS (1)
  1. SUCRALFATE UNK [Suspect]
     Active Substance: SUCRALFATE
     Indication: GASTROINTESTINAL DISORDER
     Dosage: 3 DF, TID
     Route: 048

REACTIONS (7)
  - Off label use [Unknown]
  - Product use complaint [Unknown]
  - Product quality issue [Unknown]
  - Wrong technique in product usage process [Unknown]
  - Choking [Unknown]
  - Foreign body in respiratory tract [Unknown]
  - Product dispensing error [Unknown]

NARRATIVE: CASE EVENT DATE: 201901
